FAERS Safety Report 21271087 (Version 5)
Quarter: 2025Q3

REPORT INFORMATION
  Report Type: Report from Study
  Country: BR (occurrence: BR)
  Receive Date: 20220830
  Receipt Date: 20250922
  Transmission Date: 20251020
  Serious: Yes (Other)
  Sender: NOVARTIS
  Company Number: BR-NOVARTISPH-NVSC2021BR308710

PATIENT
  Age: 56 Year
  Sex: Female
  Weight: 80 kg

DRUGS (7)
  1. TASIGNA [Suspect]
     Active Substance: NILOTINIB
     Indication: Chronic myeloid leukaemia
     Route: 065
     Dates: start: 2020
  2. TASIGNA [Suspect]
     Active Substance: NILOTINIB
     Route: 065
     Dates: start: 202003
  3. TASIGNA [Suspect]
     Active Substance: NILOTINIB
     Dosage: 200 MG, BID (2 CAPSULES (TOTAL OF 4  CAPSULES) MANUFACTURE DATE: APR 2022
     Route: 065
     Dates: start: 202011
  4. TASIGNA [Suspect]
     Active Substance: NILOTINIB
     Route: 065
     Dates: start: 20210317
  5. TASIGNA [Suspect]
     Active Substance: NILOTINIB
     Route: 065
     Dates: start: 202103
  6. TASIGNA [Suspect]
     Active Substance: NILOTINIB
     Dosage: 2 DOSAGE FORM (200 MG), BID (2 CAPSULES AT 07:00AM AND 2 AT 07:00PM)
     Route: 065
  7. METOCLOPRAMIDE HYDROCHLORIDE [Concomitant]
     Active Substance: METOCLOPRAMIDE HYDROCHLORIDE
     Indication: Product used for unknown indication
     Route: 065

REACTIONS (79)
  - Haemorrhage [Recovering/Resolving]
  - Memory impairment [Unknown]
  - Intestinal obstruction [Unknown]
  - Arrhythmia [Recovering/Resolving]
  - Paralysis [Not Recovered/Not Resolved]
  - Skin disorder [Unknown]
  - Stress [Not Recovered/Not Resolved]
  - Eating disorder [Unknown]
  - Eructation [Unknown]
  - Logorrhoea [Not Recovered/Not Resolved]
  - Retching [Not Recovered/Not Resolved]
  - Toothache [Recovered/Resolved]
  - Constipation [Not Recovered/Not Resolved]
  - Breast swelling [Not Recovered/Not Resolved]
  - Appetite disorder [Not Recovered/Not Resolved]
  - Skin exfoliation [Not Recovered/Not Resolved]
  - Eyelids pruritus [Not Recovered/Not Resolved]
  - Neck pain [Unknown]
  - Peripheral swelling [Recovered/Resolved]
  - Pain of skin [Unknown]
  - Vision blurred [Not Recovered/Not Resolved]
  - Abdominal discomfort [Recovering/Resolving]
  - Flatulence [Not Recovered/Not Resolved]
  - Therapeutic response unexpected [Recovering/Resolving]
  - Somnolence [Unknown]
  - Mental disorder [Unknown]
  - Compulsions [Unknown]
  - Gait disturbance [Not Recovered/Not Resolved]
  - Renal pain [Unknown]
  - Hepatic pain [Unknown]
  - Abnormal faeces [Unknown]
  - Proctalgia [Recovered/Resolved]
  - Dysstasia [Unknown]
  - Haemorrhoids [Unknown]
  - Pollakiuria [Unknown]
  - Dysuria [Not Recovered/Not Resolved]
  - Dyspnoea [Unknown]
  - Weight increased [Not Recovered/Not Resolved]
  - Pain in extremity [Not Recovered/Not Resolved]
  - Fatigue [Unknown]
  - Pain [Unknown]
  - Hypersensitivity [Unknown]
  - Swelling [Recovered/Resolved]
  - Malaise [Unknown]
  - Vomiting [Not Recovered/Not Resolved]
  - Anaemia [Recovered/Resolved]
  - Tachycardia [Unknown]
  - Visual impairment [Unknown]
  - Anxiety [Unknown]
  - Depression [Unknown]
  - Muscular weakness [Unknown]
  - Arthralgia [Unknown]
  - Cystitis [Not Recovered/Not Resolved]
  - Urinary tract infection [Not Recovered/Not Resolved]
  - Diarrhoea [Unknown]
  - Musculoskeletal pain [Unknown]
  - Spinal pain [Unknown]
  - Nausea [Unknown]
  - Pruritus [Not Recovered/Not Resolved]
  - Pigmentation disorder [Not Recovered/Not Resolved]
  - General physical health deterioration [Unknown]
  - Hiatus hernia [Unknown]
  - Dysgraphia [Not Recovered/Not Resolved]
  - Eye disorder [Not Recovered/Not Resolved]
  - Foreign body sensation in eyes [Not Recovered/Not Resolved]
  - Aphasia [Unknown]
  - Eye pain [Unknown]
  - Amblyopia [Not Recovered/Not Resolved]
  - Discomfort [Unknown]
  - Dry skin [Not Recovered/Not Resolved]
  - Hair texture abnormal [Not Recovered/Not Resolved]
  - Onychoclasis [Unknown]
  - Feeling abnormal [Not Recovered/Not Resolved]
  - Heart rate abnormal [Recovered/Resolved]
  - Dysania [Unknown]
  - Abdominal pain upper [Unknown]
  - Fibromyalgia [Unknown]
  - Product storage error [Not Recovered/Not Resolved]
  - Product physical issue [Unknown]

NARRATIVE: CASE EVENT DATE: 20201101
